FAERS Safety Report 5151333-5 (Version None)
Quarter: 2006Q4

REPORT INFORMATION
  Report Type: 
  Country: None (occurrence: None)
  Receive Date: 20061115
  Receipt Date: 20061106
  Transmission Date: 20070319
  Serious: Yes (Death, Hospitalization)
  Sender: FDA-Public Use
  Company Number: FR-GLAXOSMITHKLINE-B0445600A

PATIENT
  Age: 74 Year
  Sex: Female

DRUGS (13)
  1. DEROXAT [Suspect]
     Dosage: 40MG PER DAY
     Route: 048
     Dates: end: 20060928
  2. VASTEN [Suspect]
     Dosage: 40MG PER DAY
     Route: 048
     Dates: start: 20050118, end: 20060926
  3. TAHOR [Suspect]
     Dosage: 1UNIT PER DAY
     Route: 048
     Dates: end: 20050115
  4. NOVONORM [Suspect]
     Dosage: 2MG PER DAY
     Route: 048
     Dates: start: 20060215, end: 20060928
  5. FUROSEMIDE [Suspect]
     Dosage: 20MG PER DAY
     Route: 048
     Dates: start: 20060115, end: 20060929
  6. STAGID [Suspect]
     Dosage: 3TAB PER DAY
     Route: 048
     Dates: end: 20060928
  7. ATARAX [Concomitant]
     Route: 065
  8. LEVOTHYROXINE SODIUM [Concomitant]
     Route: 065
  9. DRIPTANE [Concomitant]
     Route: 065
  10. ECAZIDE [Concomitant]
     Route: 065
  11. INSULINE [Concomitant]
     Route: 065
  12. LEVEMIR [Concomitant]
     Route: 065
  13. MODOPAR [Concomitant]
     Route: 065
     Dates: start: 20060908, end: 20060928

REACTIONS (7)
  - BLOOD CREATINE PHOSPHOKINASE INCREASED [None]
  - GENERAL PHYSICAL HEALTH DETERIORATION [None]
  - HYPERTHERMIA [None]
  - INFECTION [None]
  - MUSCULAR WEAKNESS [None]
  - MYOPATHY [None]
  - STATUS EPILEPTICUS [None]
